FAERS Safety Report 12658275 (Version 2)
Quarter: 2016Q3

REPORT INFORMATION
  Report Type: Spontaneous
  Country: US (occurrence: US)
  Receive Date: 20160817
  Receipt Date: 20160818
  Transmission Date: 20161109
  Serious: No
  Sender: FDA-Public Use
  Company Number: US-009507513-1608USA001515

PATIENT
  Age: 56 Year
  Sex: Male
  Weight: 90.7 kg

DRUGS (3)
  1. CUBICIN [Suspect]
     Active Substance: DAPTOMYCIN
     Dosage: 389 MG, QD
     Route: 042
     Dates: start: 20151030, end: 201604
  2. CUBICIN [Suspect]
     Active Substance: DAPTOMYCIN
     Indication: CELLULITIS
     Dosage: 389 MG, QD
     Route: 042
     Dates: start: 20151030, end: 201604
  3. CUBICIN [Suspect]
     Active Substance: DAPTOMYCIN
     Dosage: 389 MG, QD
     Route: 042
     Dates: start: 20151030, end: 201604

REACTIONS (2)
  - No adverse event [Unknown]
  - Product use issue [Unknown]

NARRATIVE: CASE EVENT DATE: 201512
